FAERS Safety Report 16646095 (Version 1)
Quarter: 2019Q3

REPORT INFORMATION
  Report Type: Spontaneous
  Country: US (occurrence: US)
  Receive Date: 20190730
  Receipt Date: 20190730
  Transmission Date: 20191004
  Serious: No
  Sender: FDA-Public Use
  Company Number: US-GLENMARK PHARMACEUTICALS-2019GMK040982

PATIENT

DRUGS (3)
  1. HYDROCORTISONE. [Suspect]
     Active Substance: HYDROCORTISONE
     Indication: FUNGAL SKIN INFECTION
     Dosage: APPLY THE MIXED PRODUCT TWICE A DAY EVERY MORNING AND NIGHT
     Route: 061
     Dates: start: 20190226
  2. MUPIROCIN OINTMENT USP, 2% [Suspect]
     Active Substance: MUPIROCIN
     Indication: FUNGAL SKIN INFECTION
     Dosage: APPLY THE MIXED PRODUCT TWICE A DAY EVERY MORNING AND NIGHT
     Route: 061
     Dates: start: 20190226
  3. CICLOPIROX. [Suspect]
     Active Substance: CICLOPIROX
     Indication: FUNGAL SKIN INFECTION
     Dosage: APPLY THE MIXED PRODUCT TWICE A DAY EVERY MORNING AND NIGHT
     Route: 061
     Dates: start: 20190226

REACTIONS (2)
  - Wrong technique in product usage process [Unknown]
  - Drug ineffective for unapproved indication [Unknown]

NARRATIVE: CASE EVENT DATE: 20190226
